FAERS Safety Report 5923823-6 (Version None)
Quarter: 2008Q4

REPORT INFORMATION
  Report Type: 
  Country: None (occurrence: None)
  Receive Date: 20081020
  Receipt Date: 20081008
  Transmission Date: 20090506
  Serious: Yes (Hospitalization)
  Sender: FDA-Public Use
  Company Number: PHHO2008US10826

PATIENT
  Sex: Female
  Weight: 53.6 kg

DRUGS (9)
  1. BLINDED ACLASTA/ZOLEDRONATE T29581+A++OS [Suspect]
     Indication: OSTEOPOROSIS
     Dosage: DOUBLE BLIND
     Route: 042
     Dates: start: 20080226
  2. BLINDED NO TREATMENT RECEIVED NOMED [Suspect]
     Indication: OSTEOPOROSIS
     Dosage: DOUBLE BLIND
     Route: 042
     Dates: start: 20080226
  3. BLINDED PLACEBO COMP-PLA+ [Suspect]
     Indication: OSTEOPOROSIS
     Dosage: DOUBLE BLIND
     Route: 042
     Dates: start: 20080226
  4. HYDROCHLOROTHIAZIDE [Suspect]
     Dosage: UNK
  5. HYDROCHLOROTHIAZIDE [Suspect]
     Dosage: UNK
     Dates: start: 20080101, end: 20080301
  6. ZOCOR [Suspect]
  7. CHOLESTYRAMINE [Suspect]
  8. CALCIUM [Concomitant]
  9. VITAMIN D [Concomitant]

REACTIONS (15)
  - ATRIAL FIBRILLATION [None]
  - BRAIN NATRIURETIC PEPTIDE INCREASED [None]
  - CARDIAC FAILURE CONGESTIVE [None]
  - CHEST DISCOMFORT [None]
  - CONCOMITANT DISEASE PROGRESSION [None]
  - HEPATIC CONGESTION [None]
  - HEPATIC ENZYME INCREASED [None]
  - HYPERTROPHY [None]
  - HYPOKALAEMIA [None]
  - HYPONATRAEMIA [None]
  - MITRAL VALVE INCOMPETENCE [None]
  - OEDEMA PERIPHERAL [None]
  - PULMONARY CONGESTION [None]
  - PULMONARY HYPERTENSION [None]
  - TRICUSPID VALVE INCOMPETENCE [None]
